FAERS Safety Report 16284366 (Version 2)
Quarter: 2019Q2

REPORT INFORMATION
  Report Type: Spontaneous
  Country: CN (occurrence: CN)
  Receive Date: 20190508
  Receipt Date: 20190604
  Transmission Date: 20190711
  Serious: Yes (Death, Other)
  Sender: FDA-Public Use
  Company Number: CN-ROCHE-2306835

PATIENT
  Age: 60 Year
  Sex: Female

DRUGS (8)
  1. TRASTUZUMAB. [Suspect]
     Active Substance: TRASTUZUMAB
     Indication: OESOPHAGEAL ADENOCARCINOMA
     Route: 065
     Dates: start: 20170615, end: 20170817
  2. RAMUCIRUMAB [Concomitant]
     Active Substance: RAMUCIRUMAB
     Route: 065
     Dates: start: 20180213, end: 20180302
  3. RAMUCIRUMAB [Concomitant]
     Active Substance: RAMUCIRUMAB
     Route: 065
     Dates: start: 20180315, end: 20180330
  4. RAMUCIRUMAB [Concomitant]
     Active Substance: RAMUCIRUMAB
     Route: 065
     Dates: start: 20180416, end: 20180503
  5. TRASTUZUMAB. [Suspect]
     Active Substance: TRASTUZUMAB
     Route: 065
     Dates: start: 20170930, end: 20171110
  6. NIVOLUMAB [Concomitant]
     Active Substance: NIVOLUMAB
     Indication: OESOPHAGEAL ADENOCARCINOMA
     Dosage: ONCE EVERY TWO WEEKS
     Route: 065
     Dates: start: 20180602, end: 20180820
  7. RAMUCIRUMAB [Concomitant]
     Active Substance: RAMUCIRUMAB
     Route: 065
     Dates: start: 20180517, end: 20180601
  8. RAMUCIRUMAB [Concomitant]
     Active Substance: RAMUCIRUMAB
     Indication: OESOPHAGEAL ADENOCARCINOMA
     Route: 065
     Dates: start: 20180116, end: 20180123

REACTIONS (9)
  - Dysphagia [Unknown]
  - Diarrhoea [Unknown]
  - Pneumonitis [Unknown]
  - Obstructive airways disorder [Unknown]
  - Chest pain [Unknown]
  - Back pain [Unknown]
  - Death [Fatal]
  - Hydrothorax [Unknown]
  - Lung infection [Unknown]
